FAERS Safety Report 24706635 (Version 1)
Quarter: 2024Q4

REPORT INFORMATION
  Report Type: Spontaneous
  Country: US (occurrence: US)
  Receive Date: 20241206
  Receipt Date: 20241206
  Transmission Date: 20250115
  Serious: Yes (Hospitalization)
  Sender: VANDA PHARMACEUTICALS
  Company Number: US-VANDA PHARMACEUTICALS, INC-2024ILOUS001985

PATIENT
  Age: 29 Year
  Sex: Male

DRUGS (6)
  1. FANAPT [Suspect]
     Active Substance: ILOPERIDONE
     Indication: Product used for unknown indication
     Dosage: 1 MILLIGRAM, BID X 1 DAY
     Route: 065
     Dates: start: 20241001, end: 20241001
  2. FANAPT [Suspect]
     Active Substance: ILOPERIDONE
     Dosage: 2 MILLIGRAM, BID DAY 2
     Dates: start: 20241002, end: 20241002
  3. FANAPT [Suspect]
     Active Substance: ILOPERIDONE
     Dosage: 3 MILLIGRAM, BID DAY 3
     Dates: start: 20241003, end: 20241003
  4. FANAPT [Suspect]
     Active Substance: ILOPERIDONE
     Dosage: 4 MILLIGRAM, BID DAY 4
     Dates: start: 20241004, end: 20241004
  5. FANAPT [Suspect]
     Active Substance: ILOPERIDONE
     Dosage: 6 MILLIGRAM, BID
     Dates: end: 20241022
  6. DULOXETINE [Concomitant]
     Active Substance: DULOXETINE
     Indication: Product used for unknown indication
     Dosage: 60 MILLIGRAM, QD
     Route: 065

REACTIONS (1)
  - Hypervolaemia [Recovered/Resolved]

NARRATIVE: CASE EVENT DATE: 20241015
